FAERS Safety Report 16177868 (Version 1)
Quarter: 2019Q2

REPORT INFORMATION
  Report Type: Spontaneous
  Country: DE (occurrence: DE)
  Receive Date: 20190410
  Receipt Date: 20190410
  Transmission Date: 20190711
  Serious: Yes (Life-Threatening, Hospitalization, Other)
  Sender: FDA-Public Use
  Company Number: DE-AUROBINDO-AUR-APL-2019-018640

PATIENT

DRUGS (2)
  1. PHENOBARBITAL. [Suspect]
     Active Substance: PHENOBARBITAL
     Indication: NEONATAL SEIZURE
     Dosage: 15 - 0 - 22.5 MG
     Route: 065
  2. LEVETIRACETAM. [Suspect]
     Active Substance: LEVETIRACETAM
     Indication: NEONATAL SEIZURE
     Dosage: DAILY DOSE: 240 MG MILLGRAM(S) EVERY DAYS
     Route: 065

REACTIONS (8)
  - Seizure [Unknown]
  - Cyanosis [Unknown]
  - Eye movement disorder [Unknown]
  - Anticonvulsant drug level decreased [Unknown]
  - Oxygen saturation decreased [Unknown]
  - Hypertonia [Unknown]
  - Resuscitation [Unknown]
  - Product prescribing error [Unknown]

NARRATIVE: CASE EVENT DATE: 20190204
